FAERS Safety Report 15275452 (Version 1)
Quarter: 2018Q3

REPORT INFORMATION
  Report Type: Spontaneous
  Country: US (occurrence: US)
  Receive Date: 20180727
  Receipt Date: 20180727
  Transmission Date: 20181010
  Serious: Yes (Other)
  Sender: FDA-Public Use
  Company Number: None

PATIENT
  Age: 60 Year
  Sex: Female

DRUGS (4)
  1. BACLOFEN. [Concomitant]
     Active Substance: BACLOFEN
  2. PROLIA [Suspect]
     Active Substance: DENOSUMAB
     Indication: SENILE OSTEOPOROSIS
     Route: 058
  3. TECFIDER [Concomitant]
  4. AMPYRA [Concomitant]
     Active Substance: DALFAMPRIDINE

REACTIONS (4)
  - Therapeutic response unexpected [None]
  - Pain in jaw [None]
  - Hip fracture [None]
  - Fall [None]

NARRATIVE: CASE EVENT DATE: 20180406
